FAERS Safety Report 7262896-8 (Version None)
Quarter: 2011Q1

REPORT INFORMATION
  Report Type: 
  Country: None (occurrence: None)
  Receive Date: 20110130
  Receipt Date: 20100903
  Transmission Date: 20110831
  Serious: No
  Sender: FDA-Public Use
  Company Number: US-ABBOTT-10P-163-0668447-00

PATIENT
  Age: 48 Year
  Sex: Female

DRUGS (7)
  1. CELEBREX [Concomitant]
     Indication: ARTHRITIS
  2. SAVELLA [Concomitant]
     Indication: FIBROMYALGIA
  3. HUMIRA [Suspect]
     Indication: RHEUMATOID ARTHRITIS
     Dates: start: 20100701
  4. METHONOMA [Concomitant]
     Indication: INFECTION
  5. HYDROCODONE [Concomitant]
     Indication: PRODUCT USED FOR UNKNOWN INDICATION
     Dosage: 5/500MG
  6. LUNESTA [Concomitant]
     Indication: INSOMNIA
  7. METHONOMA [Concomitant]
     Indication: WHITE BLOOD CELL COUNT ABNORMAL

REACTIONS (4)
  - INJECTION SITE PAIN [None]
  - INJECTION SITE PAPULE [None]
  - INJECTION SITE NODULE [None]
  - INJECTION SITE ERYTHEMA [None]
